FAERS Safety Report 17146289 (Version 2)
Quarter: 2020Q1

REPORT INFORMATION
  Report Type: Spontaneous
  Country: US (occurrence: US)
  Receive Date: 20191212
  Receipt Date: 20200108
  Transmission Date: 20200409
  Serious: No
  Sender: FDA-Public Use
  Company Number: US-UNITED THERAPEUTICS-UNT-2019-020551

PATIENT
  Sex: Female

DRUGS (2)
  1. REMODULIN [Suspect]
     Active Substance: TREPROSTINIL
     Indication: PULMONARY ARTERIAL HYPERTENSION
     Dosage: 0.14 ?G/KG, CONTINUING
     Route: 041
     Dates: start: 20180608
  2. REMODULIN [Suspect]
     Active Substance: TREPROSTINIL
     Dosage: 0.146 ?G/KG, CONTINUING
     Route: 041
     Dates: start: 20190216

REACTIONS (4)
  - Back pain [Unknown]
  - Pain in jaw [Unknown]
  - Flushing [Unknown]
  - Nausea [Unknown]
